FAERS Safety Report 4875118-X (Version None)
Quarter: 2006Q1

REPORT INFORMATION
  Report Type: 
  Country: None (occurrence: None)
  Receive Date: 20060109
  Receipt Date: 20060105
  Transmission Date: 20060701
  Serious: Yes (Death)
  Sender: FDA-Public Use
  Company Number: FR-GLAXOSMITHKLINE-B0405738A

PATIENT
  Age: 78 Year
  Sex: Male

DRUGS (6)
  1. AUGMENTIN '125' [Suspect]
     Indication: CHOLECYSTITIS
     Route: 065
     Dates: start: 20050901, end: 20051101
  2. AMOXICILLIN [Suspect]
     Indication: ERYSIPELAS
     Route: 065
     Dates: start: 20051001, end: 20051101
  3. ZYLORIC [Concomitant]
     Route: 065
     Dates: start: 20050922, end: 20051001
  4. LASILIX [Concomitant]
     Route: 065
  5. PREVISCAN [Concomitant]
     Indication: PHLEBITIS
     Route: 065
     Dates: start: 20050101, end: 20051130
  6. PYOSTACINE [Concomitant]
     Indication: ERYSIPELAS
     Route: 065
     Dates: start: 20051101

REACTIONS (12)
  - BACTERIAL SEPSIS [None]
  - BLOOD CREATINE PHOSPHOKINASE INCREASED [None]
  - CHILLS [None]
  - DERMATITIS BULLOUS [None]
  - DERMATITIS EXFOLIATIVE [None]
  - HAEMODYNAMIC INSTABILITY [None]
  - MUSCLE ATROPHY [None]
  - PYREXIA [None]
  - RENAL FAILURE [None]
  - SKIN DISORDER [None]
  - SKIN ULCER [None]
  - TOXIC EPIDERMAL NECROLYSIS [None]
